FAERS Safety Report 8275301-X (Version None)
Quarter: 2012Q2

REPORT INFORMATION
  Report Type: 
  Country: None (occurrence: None)
  Receive Date: 20120411
  Receipt Date: 20120409
  Transmission Date: 20120825
  Serious: Yes (Death)
  Sender: FDA-Public Use
  Company Number: US-GILEAD-2012-0053098

PATIENT
  Sex: Male

DRUGS (12)
  1. TADALAFIL [Concomitant]
  2. FLECAINIDE ACETATE [Concomitant]
  3. GLUCOSE [Concomitant]
  4. PROPRANOLOL [Concomitant]
  5. DIGOXIN [Concomitant]
  6. PROSTANOID [Concomitant]
  7. ADENOSINE [Concomitant]
  8. ENDOTHELIN 1 INHIBITOR [Concomitant]
  9. LETAIRIS [Suspect]
     Indication: PRODUCT USED FOR UNKNOWN INDICATION
     Dosage: 10 MG, UNK
     Route: 048
     Dates: start: 20110909, end: 20120330
  10. DILTIAZEM HCL [Concomitant]
  11. BICARBONATE [Concomitant]
  12. LACTATE RINGER [Concomitant]

REACTIONS (2)
  - COR PULMONALE [None]
  - PULMONARY ARTERIAL HYPERTENSION [None]
